FAERS Safety Report 8512079-6 (Version None)
Quarter: 2012Q2

REPORT INFORMATION
  Report Type: 
  Country: None (occurrence: None)
  Receive Date: 20120405
  Receipt Date: 20080702
  Transmission Date: 20120825
  Serious: Yes (Hospitalization)
  Sender: FDA-Public Use
  Company Number: PHEH2008US05927

PATIENT
  Sex: Female

DRUGS (1)
  1. RECLAST [Suspect]

REACTIONS (5)
  - OEDEMA PERIPHERAL [None]
  - MYALGIA [None]
  - PAIN IN EXTREMITY [None]
  - LETHARGY [None]
  - DYSPNOEA [None]
